FAERS Safety Report 23741395 (Version 1)
Quarter: 2024Q2

REPORT INFORMATION
  Report Type: Report from Study
  Country: DO (occurrence: None)
  Receive Date: 20240415
  Receipt Date: 20240415
  Transmission Date: 20240716
  Serious: Yes (Death)
  Sender: FDA-Public Use
  Company Number: 2021A202072

PATIENT
  Age: 22996 Day
  Sex: Female

DRUGS (3)
  1. BRILINTA [Suspect]
     Active Substance: TICAGRELOR
     Indication: Ill-defined disorder
     Route: 048
     Dates: start: 202012
  2. XIGDUO XR [Suspect]
     Active Substance: DAPAGLIFLOZIN PROPANEDIOL\METFORMIN HYDROCHLORIDE
     Indication: Ill-defined disorder
     Dosage: 10MG/1000MG DAILY
     Route: 048
     Dates: start: 2018
  3. CRESTOR [Suspect]
     Active Substance: ROSUVASTATIN CALCIUM
     Indication: Ill-defined disorder
     Route: 048
     Dates: start: 202012

REACTIONS (3)
  - Renal failure [Fatal]
  - Cardiac disorder [Fatal]
  - COVID-19 [Fatal]

NARRATIVE: CASE EVENT DATE: 20210311
